FAERS Safety Report 15253710 (Version 1)
Quarter: 2018Q3

REPORT INFORMATION
  Report Type: Spontaneous
  Country: NL (occurrence: NL)
  Receive Date: 20180808
  Receipt Date: 20180808
  Transmission Date: 20181010
  Serious: Yes (Hospitalization, Other)
  Sender: FDA-Public Use
  Company Number: NL-CONCORDIA PHARMACEUTICALS INC.-E2B_00015805

PATIENT
  Age: 56 Year
  Sex: Female

DRUGS (13)
  1. TRANYLCYPROMINE [Suspect]
     Active Substance: TRANYLCYPROMINE
     Indication: DEPRESSION
     Dosage: 40 OR 80 MG DESCRIBED
  2. PANTOPRAZOL [Concomitant]
     Active Substance: PANTOPRAZOLE SODIUM
     Dates: start: 201705
  3. QUETIAPINE. [Concomitant]
     Active Substance: QUETIAPINE
     Indication: SLEEP DISORDER
     Dates: start: 201705
  4. ACETYLSALICYLIC ACID [Concomitant]
     Active Substance: ASPIRIN
     Dates: start: 201705
  5. OXAZEPAM. [Concomitant]
     Active Substance: OXAZEPAM
     Dosage: MORE THAN 10 YEARS
  6. LABETALOL [Concomitant]
     Active Substance: LABETALOL\LABETALOL HYDROCHLORIDE
     Indication: HYPERTENSION
  7. FOSINOPRIL SODIUM. [Concomitant]
     Active Substance: FOSINOPRIL SODIUM
     Dates: start: 201705
  8. SIMVASTATIN. [Concomitant]
     Active Substance: SIMVASTATIN
     Dates: start: 201705
  9. OXAZEPAM. [Concomitant]
     Active Substance: OXAZEPAM
     Dosage: 80 TO 90 MG
  10. SYNAPAUSE [Concomitant]
  11. BRILIQUE [Concomitant]
     Active Substance: TICAGRELOR
     Dates: start: 201705
  12. OXAZEPAM. [Concomitant]
     Active Substance: OXAZEPAM
     Dates: start: 20170501
  13. TRANYLCYPROMINE [Suspect]
     Active Substance: TRANYLCYPROMINE
     Dosage: 20?10?10?10 MG
     Dates: start: 2016

REACTIONS (13)
  - Suicidal ideation [Unknown]
  - Orthostatic hypotension [Unknown]
  - Myocardial infarction [Unknown]
  - Sleep disorder [Recovering/Resolving]
  - Insomnia [Not Recovered/Not Resolved]
  - Alopecia [Not Recovered/Not Resolved]
  - Weight increased [Not Recovered/Not Resolved]
  - Therapeutic response unexpected [Unknown]
  - Hypertensive crisis [Unknown]
  - Left ventricular dysfunction [Not Recovered/Not Resolved]
  - Blood pressure diastolic increased [Unknown]
  - Off label use [Recovered/Resolved]
  - Depression [Recovering/Resolving]

NARRATIVE: CASE EVENT DATE: 20170514
